FAERS Safety Report 15493367 (Version 3)
Quarter: 2019Q3

REPORT INFORMATION
  Report Type: Report from Study
  Country: JP (occurrence: JP)
  Receive Date: 20181012
  Receipt Date: 20190830
  Transmission Date: 20191004
  Serious: Yes (Other)
  Sender: FDA-Public Use
  Company Number: JP-JNJFOC-20181009002

PATIENT
  Age: 63 Year
  Sex: Male
  Weight: 71.6 kg

DRUGS (29)
  1. SIMPONI [Suspect]
     Active Substance: GOLIMUMAB
     Dosage: 4 WEEKS AFTER SECOND DOSE
     Route: 058
     Dates: start: 20181003, end: 20181003
  2. VICCLOX                            /00587301/ [Concomitant]
     Active Substance: ACYCLOVIR SODIUM
     Indication: HERPES ZOSTER
     Route: 065
     Dates: start: 20180328, end: 20180404
  3. SIMPONI [Suspect]
     Active Substance: GOLIMUMAB
     Dosage: 4 WEEKS AFTER SECOND DOSE
     Route: 058
     Dates: start: 20190220, end: 20190220
  4. PREDONINE [Suspect]
     Active Substance: PREDNISOLONE
     Route: 048
     Dates: start: 20180415, end: 20180418
  5. SIMPONI [Suspect]
     Active Substance: GOLIMUMAB
     Dosage: 4 WEEKS AFTER SECOND DOSE
     Route: 058
     Dates: start: 20180808, end: 20180808
  6. SIMPONI [Suspect]
     Active Substance: GOLIMUMAB
     Dosage: 4 WEEKS AFTER SECOND DOSE
     Route: 058
     Dates: start: 20181029, end: 20181029
  7. PREDONINE [Suspect]
     Active Substance: PREDNISOLONE
     Route: 048
     Dates: start: 20180407, end: 20180414
  8. SIMPONI [Suspect]
     Active Substance: GOLIMUMAB
     Dosage: 4 WEEKS AFTER SECOND DOSE
     Route: 058
     Dates: start: 20180613, end: 20180613
  9. SIMPONI [Suspect]
     Active Substance: GOLIMUMAB
     Dosage: 4 WEEKS AFTER SECOND DOSE
     Route: 058
     Dates: start: 20180905, end: 20180905
  10. PREDONINE [Suspect]
     Active Substance: PREDNISOLONE
     Route: 048
     Dates: start: 20180227, end: 20180307
  11. PREDONINE [Suspect]
     Active Substance: PREDNISOLONE
     Route: 048
     Dates: start: 201804, end: 20180428
  12. MIYA-BM [Concomitant]
     Active Substance: CLOSTRIDIUM BUTYRICUM SPORES STRAIN M-55
     Route: 048
  13. SIMPONI [Suspect]
     Active Substance: GOLIMUMAB
     Dosage: 4 WEEKS AFTER SECOND DOSE
     Route: 058
     Dates: start: 20180418, end: 20180418
  14. SIMPONI [Suspect]
     Active Substance: GOLIMUMAB
     Dosage: 4 WEEKS AFTER SECOND DOSE
     Route: 058
     Dates: start: 20180516, end: 20180516
  15. SIMPONI [Suspect]
     Active Substance: GOLIMUMAB
     Dosage: 4 WEEKS AFTER SECOND DOSE
     Route: 058
     Dates: start: 20180711, end: 20180711
  16. SIMPONI [Suspect]
     Active Substance: GOLIMUMAB
     Dosage: 4 WEEKS AFTER SECOND DOSE
     Route: 058
     Dates: start: 20181226, end: 20181226
  17. SIMPONI [Suspect]
     Active Substance: GOLIMUMAB
     Dosage: 4 WEEKS AFTER SECOND DOSE
     Route: 058
     Dates: start: 20190123, end: 20190123
  18. PREDONINE [Suspect]
     Active Substance: PREDNISOLONE
     Route: 048
     Dates: start: 20180213, end: 20180226
  19. PREDONINE [Suspect]
     Active Substance: PREDNISOLONE
     Route: 048
     Dates: start: 20180308, end: 20180315
  20. PREDONINE [Suspect]
     Active Substance: PREDNISOLONE
     Route: 048
     Dates: start: 20180331, end: 20180406
  21. SIMPONI [Suspect]
     Active Substance: GOLIMUMAB
     Dosage: 4 WEEKS AFTER SECOND DOSE
     Route: 058
     Dates: start: 20181129, end: 20181129
  22. PREDONINE [Suspect]
     Active Substance: PREDNISOLONE
     Route: 048
     Dates: start: 20180316, end: 20180323
  23. LIALDA [Concomitant]
     Active Substance: MESALAMINE
     Indication: COLITIS ULCERATIVE
     Route: 048
  24. MIYA-BM [Concomitant]
     Active Substance: CLOSTRIDIUM BUTYRICUM SPORES STRAIN M-55
     Indication: COLITIS ULCERATIVE
     Route: 048
  25. SIMPONI [Suspect]
     Active Substance: GOLIMUMAB
     Indication: COLITIS ULCERATIVE
     Dosage: INITIAL DOSE
     Route: 058
     Dates: start: 20180302, end: 20180302
  26. PREDONINE [Suspect]
     Active Substance: PREDNISOLONE
     Route: 048
     Dates: start: 20180324, end: 20180330
  27. SIMPONI [Suspect]
     Active Substance: GOLIMUMAB
     Dosage: 2 WEEKS AFTER INITIAL DOSE
     Route: 058
     Dates: start: 20180316, end: 20180316
  28. SIMPONI [Suspect]
     Active Substance: GOLIMUMAB
     Dosage: 4 WEEKS AFTER SECOND DOSE
     Route: 058
     Dates: start: 20190320, end: 20190320
  29. PREDONINE [Suspect]
     Active Substance: PREDNISOLONE
     Indication: COLITIS ULCERATIVE
     Route: 048
     Dates: start: 20180131, end: 20180212

REACTIONS (1)
  - Herpes zoster [Recovering/Resolving]

NARRATIVE: CASE EVENT DATE: 20180323
